FAERS Safety Report 10013595 (Version 1)
Quarter: 2014Q1

REPORT INFORMATION
  Report Type: Spontaneous
  Country: FR (occurrence: FR)
  Receive Date: 20140315
  Receipt Date: 20140315
  Transmission Date: 20141002
  Serious: Yes (Hospitalization)
  Sender: FDA-Public Use
  Company Number: FR-ROCHE-1359956

PATIENT
  Age: 59 Year
  Sex: Female

DRUGS (12)
  1. VESANOID [Suspect]
     Indication: ACUTE MYELOID LEUKAEMIA
     Route: 048
     Dates: start: 201304
  2. VESANOID [Suspect]
     Dosage: 15DAY COURSES EVERY 3 MONTH
     Route: 048
     Dates: start: 20131202
  3. UVEDOSE [Concomitant]
     Route: 065
     Dates: start: 20131001, end: 20131030
  4. METHOTREXATE [Concomitant]
  5. PURINETHOL [Concomitant]
  6. CARDENSIEL [Concomitant]
  7. INEXIUM [Concomitant]
  8. MOTILIUM [Concomitant]
  9. PROZAC [Concomitant]
  10. DIFFU-K [Concomitant]
  11. IMOVANE [Concomitant]
  12. ARSENIC TRIOXIDE [Concomitant]

REACTIONS (3)
  - Hypercalcaemia [Recovered/Resolved]
  - Blood parathyroid hormone abnormal [Recovering/Resolving]
  - Blood phosphorus decreased [Recovered/Resolved]
